FAERS Safety Report 4382875-8 (Version None)
Quarter: 2004Q2

REPORT INFORMATION
  Report Type: 
  Country: None (occurrence: None)
  Receive Date: 20040617
  Receipt Date: 20040608
  Transmission Date: 20050107
  Serious: Yes (Death)
  Sender: FDA-Public Use
  Company Number: 163-20785-04060255

PATIENT
  Age: 84 Year
  Sex: Male

DRUGS (1)
  1. THALOMID [Suspect]
     Dosage: ORAL
     Route: 048

REACTIONS (4)
  - CARDIAC FAILURE CONGESTIVE [None]
  - PRURITUS [None]
  - RASH [None]
  - RENAL FAILURE ACUTE [None]
